FAERS Safety Report 4760513-X (Version None)
Quarter: 2005Q3

REPORT INFORMATION
  Report Type: 
  Country: None (occurrence: None)
  Receive Date: 20050902
  Receipt Date: 20050829
  Transmission Date: 20060218
  Serious: Yes (Hospitalization)
  Sender: FDA-Public Use
  Company Number: US-BRISTOL-MYERS SQUIBB COMPANY-13094180

PATIENT
  Age: 71 Year
  Sex: Male

DRUGS (5)
  1. CETUXIMAB [Suspect]
     Indication: OESOPHAGEAL CARCINOMA
     Dosage: WEEKLY X 6.  INTERRUPTED (DATE NOT REPORTED).
     Route: 042
     Dates: start: 20050811, end: 20050811
  2. CARBOPLATIN [Suspect]
     Indication: OESOPHAGEAL CARCINOMA
     Dosage: AUC 2 WEEKLY X 6.  INTERRUPTED (DATE NOT REPORTED).
     Route: 042
     Dates: start: 20050811, end: 20050811
  3. TAXOL [Suspect]
     Indication: OESOPHAGEAL CARCINOMA
     Dosage: WEELY X 6.  INTERRUPTED (DATE NOT REPORTED).
     Route: 042
     Dates: start: 20050811, end: 20050811
  4. RADIATION THERAPY [Suspect]
     Indication: OESOPHAGEAL CARCINOMA
  5. COZAAR [Concomitant]
     Dates: end: 20050811

REACTIONS (5)
  - INFECTION [None]
  - NAUSEA [None]
  - OEDEMA [None]
  - RASH [None]
  - SYNCOPE [None]
